FAERS Safety Report 12914234 (Version 2)
Quarter: 2016Q4

REPORT INFORMATION
  Report Type: Spontaneous
  Country: US (occurrence: US)
  Receive Date: 20161106
  Receipt Date: 20161111
  Transmission Date: 20170207
  Serious: Yes (Other)
  Sender: FDA-Public Use
  Company Number: US-AMGEN-USASP2016152061

PATIENT
  Sex: Female

DRUGS (4)
  1. IBRANCE [Concomitant]
     Active Substance: PALBOCICLIB
     Dosage: 75 UNK, CYCLICAL
  2. IBRANCE [Concomitant]
     Active Substance: PALBOCICLIB
     Dosage: 100 UNK, CYCLICAL, 2 CYCLES
  3. IBRANCE [Concomitant]
     Active Substance: PALBOCICLIB
     Dosage: 125 UNK, CYCLICAL, 5 CYCLES
     Dates: start: 201510
  4. XGEVA [Suspect]
     Active Substance: DENOSUMAB
     Indication: PRODUCT USED FOR UNKNOWN INDICATION
     Dosage: UNK
     Route: 065

REACTIONS (7)
  - Blood alkaline phosphatase increased [Unknown]
  - Laboratory test abnormal [Unknown]
  - Blood calcium abnormal [Unknown]
  - Injection site reaction [Unknown]
  - Tumour marker increased [Unknown]
  - Metastasis [Unknown]
  - Blood magnesium abnormal [Unknown]
